FAERS Safety Report 6329667-8 (Version None)
Quarter: 2009Q3

REPORT INFORMATION
  Report Type: 
  Country: None (occurrence: None)
  Receive Date: 20090824
  Receipt Date: 20090824
  Transmission Date: 20100115
  Serious: Yes (Other)
  Sender: FDA-Public Use
  Company Number: None

PATIENT
  Age: 10 Year
  Sex: Female
  Weight: 54.5 kg

DRUGS (1)
  1. REMICADE [Suspect]
     Indication: CROHN'S DISEASE
     Dosage: 300 MG
     Dates: start: 20090507, end: 20090618

REACTIONS (7)
  - CARDITIS [None]
  - ELECTROCARDIOGRAM PR PROLONGATION [None]
  - IMMUNE SYSTEM DISORDER [None]
  - MITRAL VALVE INCOMPETENCE [None]
  - RHEUMATIC FEVER [None]
  - STREPTOCOCCAL INFECTION [None]
  - SYDENHAM'S CHOREA [None]
